FAERS Safety Report 8224940-0 (Version None)
Quarter: 2012Q1

REPORT INFORMATION
  Report Type: 
  Country: None (occurrence: None)
  Receive Date: 20120319
  Receipt Date: 20120308
  Transmission Date: 20120608
  Serious: Yes (Hospitalization)
  Sender: FDA-Public Use
  Company Number: 2012SP000675

PATIENT
  Age: 46 Year
  Sex: Female
  Weight: 57 kg

DRUGS (19)
  1. BETAMETHASONE [Concomitant]
  2. CYCLOSPORINE [Concomitant]
  3. MAGNESIUM ELEMENTAL [Concomitant]
  4. AMLODIPINE [Concomitant]
  5. SODIUM CHLORIDE INJ [Concomitant]
  6. HEPARIN LOCK-FLUSH [Concomitant]
  7. PANTOPRAZOLE [Concomitant]
  8. MAGNESIUM SSULFATE [Concomitant]
  9. HYDROMORPHONE HCL [Concomitant]
  10. LIDOCAINE HCL VISCOUS [Concomitant]
  11. VALACYCLOVIR [Concomitant]
  12. PROCHLORPERAZINE [Concomitant]
  13. POSACONAZOLE [Suspect]
     Dosage: 400 MG;BID;PO
     Route: 048
     Dates: start: 20111224, end: 20120115
  14. POTASSIUM CHLORIDE [Concomitant]
  15. URSODIOL [Concomitant]
  16. POTASSIUM CHLORIDE [Concomitant]
  17. POSACONAZOLE [Suspect]
     Indication: FUNGAL INFECTION
     Dosage: 300 MG;QID;IV
     Route: 042
     Dates: start: 20111219, end: 20111223
  18. LEVOTHYROXINE SODIUM [Concomitant]
  19. ZOPICLONE [Concomitant]

REACTIONS (16)
  - HYPOMAGNESAEMIA [None]
  - RASH [None]
  - PARAESTHESIA [None]
  - POST TRANSPLANT LYMPHOPROLIFERATIVE DISORDER [None]
  - THERAPEUTIC RESPONSE DECREASED [None]
  - CYSTITIS [None]
  - DYSPHONIA [None]
  - CORONA VIRUS INFECTION [None]
  - BK VIRUS INFECTION [None]
  - HAEMOGLOBIN DECREASED [None]
  - PHARYNGITIS [None]
  - ORAL HERPES [None]
  - HYPOKALAEMIA [None]
  - PLATELET COUNT DECREASED [None]
  - BLOOD LACTATE DEHYDROGENASE INCREASED [None]
  - RESPIRATORY SYNCYTIAL VIRUS INFECTION [None]
